FAERS Safety Report 5873946-5 (Version None)
Quarter: 2008Q3

REPORT INFORMATION
  Report Type: 
  Country: None (occurrence: None)
  Receive Date: 20080905
  Receipt Date: 20080905
  Transmission Date: 20090109
  Serious: Yes (Life-Threatening, Hospitalization, Other)
  Sender: FDA-Public Use
  Company Number: None

PATIENT
  Age: 45 Year
  Sex: Female
  Weight: 45.3597 kg

DRUGS (4)
  1. CHANTIX [Suspect]
     Indication: NICOTINE DEPENDENCE
     Dosage: 1 MG DAILY PO
     Route: 048
     Dates: start: 20080514, end: 20080809
  2. CLONAZEPAM [Concomitant]
  3. LORAZEPAM [Concomitant]
  4. ESTROGENIC SUBSTANCE [Concomitant]

REACTIONS (3)
  - INTENTIONAL OVERDOSE [None]
  - RESPIRATORY DEPRESSION [None]
  - SUICIDE ATTEMPT [None]
